FAERS Safety Report 5989379-7 (Version None)
Quarter: 2008Q4

REPORT INFORMATION
  Report Type: 
  Country: None (occurrence: None)
  Receive Date: 20081205
  Receipt Date: 20081201
  Transmission Date: 20090506
  Serious: Yes (Life-Threatening)
  Sender: FDA-Public Use
  Company Number: CERZ-1000442

PATIENT
  Sex: Female

DRUGS (1)
  1. CEREZYME [Suspect]
     Indication: GAUCHER'S DISEASE
     Dosage: Q2W, INTRAVENOUS
     Route: 042

REACTIONS (2)
  - ACUTE PULMONARY OEDEMA [None]
  - HYPERTENSION [None]
